FAERS Safety Report 9587928 (Version 1)
Quarter: 2013Q4

REPORT INFORMATION
  Report Type: Spontaneous
  Country: US (occurrence: US)
  Receive Date: 20131003
  Receipt Date: 20131003
  Transmission Date: 20140711
  Serious: Yes (Other)
  Sender: FDA-Public Use
  Company Number: US-UCBSA-098916

PATIENT
  Sex: Male

DRUGS (1)
  1. KEPPRA [Suspect]
     Indication: CONVULSION

REACTIONS (3)
  - Diabetes mellitus [Not Recovered/Not Resolved]
  - Convulsion [Not Recovered/Not Resolved]
  - Hyperlipidaemia [Not Recovered/Not Resolved]
